FAERS Safety Report 18439293 (Version 1)
Quarter: 2020Q4

REPORT INFORMATION
  Report Type: Spontaneous
  Country: CN (occurrence: CN)
  Receive Date: 20201029
  Receipt Date: 20201029
  Transmission Date: 20210114
  Serious: Yes (Other)
  Sender: FDA-Public Use
  Company Number: CN-JIANGSU HENGRUI MEDICINE CO., LTD.-2093318

PATIENT
  Age: 53 Year
  Sex: Female

DRUGS (2)
  1. CAPECITABINE. [Suspect]
     Active Substance: CAPECITABINE
     Route: 048
     Dates: start: 20130910, end: 20130910
  2. IRINOTECAN HYDROCHLORIDE INJECTION, 20 MG/ML (2 ML AND 5 ML VIALS) (AN [Suspect]
     Active Substance: IRINOTECAN HYDROCHLORIDE
     Indication: COLON CANCER
     Route: 041
     Dates: start: 20130910, end: 20130910

REACTIONS (1)
  - Immune thrombocytopenia [Recovered/Resolved]

NARRATIVE: CASE EVENT DATE: 20130910
